FAERS Safety Report 4958580-3 (Version None)
Quarter: 2006Q1

REPORT INFORMATION
  Report Type: 
  Country: None (occurrence: None)
  Receive Date: 20060127
  Receipt Date: 20050927
  Transmission Date: 20060701
  Serious: Yes (Death)
  Sender: FDA-Public Use
  Company Number: 2005-US-00231

PATIENT
  Age: 49 Year
  Sex: Female

DRUGS (15)
  1. CLOZAPINE [Suspect]
     Dosage: 850 MG, QD, ORAL
     Route: 048
     Dates: start: 20030701, end: 20050516
  2. CLARITHROMYCIN [Concomitant]
  3. MELOXICAM [Concomitant]
  4. LEVOTHYROXINE SODIUM [Concomitant]
  5. FAMOTIDINE [Concomitant]
  6. ATENOLOL [Concomitant]
  7. GABAPENTIN [Concomitant]
  8. CEFADROXIL [Concomitant]
  9. B-KOMPLEX [Concomitant]
  10. PARACETAMOL [Concomitant]
  11. FERROUS SULFATE TAB [Concomitant]
  12. CLONAZEPAM [Concomitant]
  13. MULTI-VITAMINS VITAFIT [Concomitant]
  14. AMANTADINE HCL [Concomitant]
  15. OXYBUTYNIN [Concomitant]

REACTIONS (1)
  - INTENTIONAL DRUG MISUSE [None]
